FAERS Safety Report 4543899-0 (Version None)
Quarter: 2005Q1

REPORT INFORMATION
  Report Type: 
  Country: None (occurrence: None)
  Receive Date: 20050103
  Receipt Date: 20040315
  Transmission Date: 20050727
  Serious: Yes (Hospitalization)
  Sender: FDA-Public Use
  Company Number: GXKR2004DE00490

PATIENT
  Age: 73 Year
  Sex: Female
  Weight: 59 kg

DRUGS (7)
  1. CAPTOPRIL (NGX)(CAPTOPRIL) TABLET, 25MG [Suspect]
     Indication: HYPERTENSION
     Dosage: 25 MG, ORAL
     Route: 048
     Dates: start: 19910101
  2. INSUMAN RAPID(HUMAN INSULIN) [Suspect]
     Indication: DIABETES MELLITUS INSULIN-DEPENDENT
     Dosage: 18 IU (8-5-5), SUBCUTANEOUS
     Route: 058
     Dates: start: 19890101
  3. INSUMAN BASAL(HUMAN INSULIN) [Suspect]
     Indication: DIABETES MELLITUS INSULIN-DEPENDENT
     Dosage: 12IU (8-0-0-4), SUBCUTANEOUS
     Route: 058
     Dates: start: 19890101
  4. DOPERGIN (LISURIDE MALEATE) [Concomitant]
  5. EVISTA [Concomitant]
  6. ISICOM (CARBIDOPA, LEVODOPA) [Concomitant]
  7. L-THYROXINE (LEVOTHYROXINE) [Concomitant]

REACTIONS (6)
  - BLOOD PRESSURE SYSTOLIC INCREASED [None]
  - COLD SWEAT [None]
  - COMA [None]
  - DRUG INTERACTION [None]
  - HYPOGLYCAEMIA [None]
  - TREATMENT NONCOMPLIANCE [None]
